FAERS Safety Report 6011490-5 (Version None)
Quarter: 2008Q4

REPORT INFORMATION
  Report Type: 
  Country: None (occurrence: None)
  Receive Date: 20081217
  Receipt Date: 20081217
  Transmission Date: 20090506
  Serious: No
  Sender: FDA-Public Use
  Company Number: None

PATIENT
  Age: 51 Year
  Sex: Female

DRUGS (1)
  1. LISINOPRIL [Suspect]
     Indication: HYPERTENSION
     Dosage: N/A N/A PO
     Route: 048

REACTIONS (3)
  - DYSPNOEA [None]
  - HYPOAESTHESIA ORAL [None]
  - LIP SWELLING [None]
